FAERS Safety Report 16018723 (Version 1)
Quarter: 2019Q1

REPORT INFORMATION
  Report Type: Spontaneous
  Country: ES (occurrence: ES)
  Receive Date: 20190228
  Receipt Date: 20190228
  Transmission Date: 20190418
  Serious: Yes (Life-Threatening, Hospitalization, Other)
  Sender: FDA-Public Use
  Company Number: ES-PFIZER INC-2019091108

PATIENT
  Age: 50 Year
  Sex: Male

DRUGS (5)
  1. LINEZOLID. [Suspect]
     Active Substance: LINEZOLID
     Indication: PNEUMONIA
     Dosage: 600 MG, 2X/DAY (12H)
     Route: 042
     Dates: start: 20190116, end: 20190121
  2. TAMIFLU [Suspect]
     Active Substance: OSELTAMIVIR PHOSPHATE
     Indication: INFLUENZA A VIRUS TEST POSITIVE
     Dosage: 75 MG, 1X/DAY
     Route: 048
     Dates: start: 20190117, end: 20190120
  3. VORICONAZOLE. [Suspect]
     Active Substance: VORICONAZOLE
     Indication: PNEUMONIA
     Dosage: 500 MG, 1X/DAY
     Route: 048
     Dates: start: 20190117, end: 20190121
  4. AZITHROMYCIN ANHYDROUS. [Suspect]
     Active Substance: AZITHROMYCIN ANHYDROUS
     Indication: PNEUMONIA
     Dosage: 500 MG, 1X/DAY
     Route: 042
     Dates: start: 20190116, end: 20190120
  5. AMOXICILLIN SODIUM/CLAVULANIC ACID [Suspect]
     Active Substance: AMOXICILLIN\CLAVULANIC ACID
     Indication: PNEUMONIA
     Dosage: 1 DF, 3X/DAY (8H)
     Route: 042
     Dates: start: 20190115, end: 20190120

REACTIONS (2)
  - Coagulopathy [Recovered/Resolved]
  - Hepatitis cholestatic [Recovering/Resolving]

NARRATIVE: CASE EVENT DATE: 20190120
